FAERS Safety Report 6369919-9 (Version None)
Quarter: 2009Q3

REPORT INFORMATION
  Report Type: 
  Country: None (occurrence: None)
  Receive Date: 20090923
  Receipt Date: 20071121
  Transmission Date: 20100115
  Serious: Yes (Other)
  Sender: FDA-Public Use
  Company Number: US-ASTRAZENECA-2006UW11662

PATIENT
  Age: 42 Year
  Sex: Female
  Weight: 66.7 kg

DRUGS (2)
  1. SEROQUEL [Suspect]
     Route: 048
  2. HALDOL [Concomitant]
     Dates: end: 19980901

REACTIONS (2)
  - DIABETES MELLITUS [None]
  - DIABETES MELLITUS INADEQUATE CONTROL [None]
